FAERS Safety Report 4804342-7 (Version None)
Quarter: 2005Q4

REPORT INFORMATION
  Report Type: 
  Country: None (occurrence: None)
  Receive Date: 20051018
  Receipt Date: 20051018
  Transmission Date: 20060501
  Serious: Yes (Other)
  Sender: FDA-Public Use
  Company Number: None

PATIENT
  Age: 12 Year
  Sex: Male
  Weight: 83.9154 kg

DRUGS (2)
  1. LORATADINE [Suspect]
     Indication: RHINITIS ALLERGIC
     Dosage: 10 MG PO QD
     Route: 048
     Dates: start: 20020101
  2. CLARINEX [Suspect]
     Dosage: 5 MG PO QD
     Route: 048
     Dates: start: 20050101

REACTIONS (1)
  - EPISTAXIS [None]
